FAERS Safety Report 25240663 (Version 3)
Quarter: 2025Q3

REPORT INFORMATION
  Report Type: Report from Study
  Country: US (occurrence: None)
  Receive Date: 20250425
  Receipt Date: 20250704
  Transmission Date: 20251021
  Serious: Yes (Congenital Anomaly, Other)
  Sender: AXSOME THERAPEUTICS, INC.
  Company Number: US-Axsome Therapeutics, Inc.-AXS202504-000675

PATIENT
  Age: 2 Month
  Sex: Female
  Weight: 4.74 kg

DRUGS (1)
  1. SUNOSI [Suspect]
     Active Substance: SOLRIAMFETOL
     Indication: Product used for unknown indication
     Route: 064

REACTIONS (3)
  - Infantile haemangioma [Not Recovered/Not Resolved]
  - Postnatal growth restriction [Recovered/Resolved]
  - Foetal exposure during pregnancy [Recovered/Resolved]

NARRATIVE: CASE EVENT DATE: 20240101
